FAERS Safety Report 7922385 (Version 5)
Quarter: 2015Q2

REPORT INFORMATION
  Report Type: Spontaneous
  Country: US (occurrence: US)
  Receive Date: 20110429
  Receipt Date: 20150403
  Transmission Date: 20150821
  Serious: No
  Sender: FDA-Public Use
  Company Number: US-ASTRAZENECA-2011SE08321

PATIENT
  Sex: Female

DRUGS (4)
  1. PRILOSEC [Suspect]
     Active Substance: OMEPRAZOLE MAGNESIUM
     Route: 048
  2. NEXIUM [Suspect]
     Active Substance: ESOMEPRAZOLE MAGNESIUM
     Route: 048
     Dates: start: 2010
  3. NEXIUM [Suspect]
     Active Substance: ESOMEPRAZOLE MAGNESIUM
     Route: 048
  4. TUMS [Concomitant]
     Active Substance: CALCIUM CARBONATE

REACTIONS (14)
  - Pain [Unknown]
  - Gastric ulcer [Unknown]
  - Drug dose omission [Unknown]
  - Memory impairment [Unknown]
  - Gastrooesophageal reflux disease [Unknown]
  - Dyspnoea [Unknown]
  - Insomnia [Unknown]
  - Malaise [Unknown]
  - Neuropathy peripheral [Unknown]
  - Throat irritation [Unknown]
  - Fibromyalgia [Unknown]
  - Drug ineffective [Unknown]
  - Abasia [Unknown]
  - Sleep disorder due to a general medical condition [Unknown]
